FAERS Safety Report 7327058-4 (Version None)
Quarter: 2011Q1

REPORT INFORMATION
  Report Type: 
  Country: None (occurrence: None)
  Receive Date: 20110218
  Receipt Date: 20110208
  Transmission Date: 20110831
  Serious: No
  Sender: FDA-Public Use
  Company Number: SPI201100015

PATIENT
  Age: 53 Year
  Sex: Female
  Weight: 52.2 kg

DRUGS (16)
  1. HYOSCYCAMINE SULFATE [Concomitant]
  2. FLAXSEED OIL (LINUM USITATISSINUM SEED OIL) [Concomitant]
  3. CALCIUM WITH VITAMIN D (CALCIUM PHOSPHATE, CALCIUM SODIUM LACTATE, ERG [Concomitant]
  4. NITROGLYCERIN (GLYCERYL TRINITRATE) TABLET [Concomitant]
  5. AMITIZA [Suspect]
     Indication: IRRITABLE BOWEL SYNDROME
     Dosage: 24 MCG, BID, ORAL
     Route: 048
     Dates: start: 20110106, end: 20110126
  6. ASPIRIN [Concomitant]
  7. MULTIVITAM (VITAMINS NOS) [Concomitant]
  8. DICYCLOMINE [Concomitant]
  9. HYDROCODONE BITARTRATE [Concomitant]
  10. MIGRAINE MEDICATION [Concomitant]
  11. METOCLOPRAMIDE [Concomitant]
  12. FISH OIL [Concomitant]
  13. CRESTOR [Concomitant]
  14. CPQ 10 (UBIDECARENONE) [Concomitant]
  15. ACIPHEX (RABERPRAZOLE SODIUM) [Concomitant]
  16. RAMIPRIL [Concomitant]

REACTIONS (14)
  - PAIN [None]
  - AGEUSIA [None]
  - BACK PAIN [None]
  - HEADACHE [None]
  - URTICARIA [None]
  - CHEST DISCOMFORT [None]
  - COUGH [None]
  - DIARRHOEA [None]
  - PARAESTHESIA ORAL [None]
  - CHILLS [None]
  - NAUSEA [None]
  - INFLUENZA LIKE ILLNESS [None]
  - SWOLLEN TONGUE [None]
  - HYPOAESTHESIA ORAL [None]
